FAERS Safety Report 4711890-7 (Version None)
Quarter: 2005Q2

REPORT INFORMATION
  Report Type: 
  Country: None (occurrence: None)
  Receive Date: 20050629
  Receipt Date: 20050404
  Transmission Date: 20051028
  Serious: No
  Sender: FDA-Public Use
  Company Number: 05P-163-0296170-00

PATIENT
  Age: 63 Year
  Sex: Female
  Weight: 118 kg

DRUGS (9)
  1. HUMIRA [Suspect]
     Indication: RHEUMATOID ARTHRITIS
     Dosage: 40 MG, 1 IN 2 WK, SUBCUTANEOUS
     Route: 058
     Dates: start: 20040101
  2. METHOTREXATE [Concomitant]
  3. OMEPRAZOLE [Concomitant]
  4. METFORMIN [Concomitant]
  5. LEVOTHYROXINE SODIUM [Concomitant]
  6. PRANDIN [Concomitant]
  7. ESTRATEST H.S. [Concomitant]
  8. HYDROXYCHLOROQUINE SULFATE [Concomitant]
  9. ZOCOR [Concomitant]

REACTIONS (3)
  - EAR INFECTION [None]
  - INJECTION SITE PAIN [None]
  - SINUSITIS [None]
